FAERS Safety Report 20410869 (Version 3)
Quarter: 2022Q1

REPORT INFORMATION
  Report Type: Spontaneous
  Country: GR (occurrence: GR)
  Receive Date: 20220201
  Receipt Date: 20220322
  Transmission Date: 20220423
  Serious: Yes (Death, Life-Threatening, Hospitalization, Other)
  Sender: FDA-Public Use
  Company Number: GR-MLMSERVICE-20220113-3317023-1

PATIENT
  Age: 64 Year
  Sex: Female

DRUGS (2)
  1. BUPRENORPHINE [Suspect]
     Active Substance: BUPRENORPHINE
     Indication: Drug use disorder
     Dosage: UNK
     Route: 065
  2. LEVOTHYROXINE SODIUM [Concomitant]
     Active Substance: LEVOTHYROXINE SODIUM
     Indication: Hypothyroidism
     Dosage: 125 MCG, DAILY

REACTIONS (6)
  - Cardiac failure [Fatal]
  - Drug withdrawal syndrome [Fatal]
  - Ischaemic stroke [Fatal]
  - Cerebral artery thrombosis [Fatal]
  - Acute coronary syndrome [Fatal]
  - Stress cardiomyopathy [Fatal]
